FAERS Safety Report 19524818 (Version 1)
Quarter: 2021Q3

REPORT INFORMATION
  Report Type: Spontaneous
  Country: US (occurrence: US)
  Receive Date: 20210712
  Receipt Date: 20210712
  Transmission Date: 20211014
  Serious: No
  Sender: FDA-Public Use
  Company Number: None

PATIENT
  Age: 35 Year
  Sex: Female
  Weight: 52.2 kg

DRUGS (6)
  1. SHOPRITE VITAMIN D3 [Concomitant]
  2. MULTIVITAMINS [Concomitant]
     Active Substance: VITAMINS
  3. LUTEIN [Concomitant]
     Active Substance: LUTEIN
  4. AIRBORNE CHEWABLE TABLETS [Concomitant]
  5. WALGREENS CALLUS REMOVER SALICYLIC ACID 40% [Suspect]
     Active Substance: SALICYLIC ACID
     Indication: HYPERKERATOSIS
     Dosage: ?          QUANTITY:4 PATCH(ES);OTHER FREQUENCY:EVERY 48 HRS;?
     Route: 062
     Dates: start: 20210530, end: 20210603
  6. NATURE^S BOUNTY B?12 [Concomitant]

REACTIONS (8)
  - Blister [None]
  - Pruritus [None]
  - Skin exfoliation [None]
  - Gait disturbance [None]
  - Burns second degree [None]
  - Pustule [None]
  - Application site burn [None]
  - Limb injury [None]

NARRATIVE: CASE EVENT DATE: 20210530
